FAERS Safety Report 8398592-3 (Version None)
Quarter: 2012Q2

REPORT INFORMATION
  Report Type: 
  Country: None (occurrence: None)
  Receive Date: 20120531
  Receipt Date: 20120523
  Transmission Date: 20120825
  Serious: Yes (Hospitalization)
  Sender: FDA-Public Use
  Company Number: CH-BRISTOL-MYERS SQUIBB COMPANY-16624454

PATIENT
  Age: 27 Year
  Sex: Female

DRUGS (4)
  1. ABILIFY [Suspect]
     Route: 048
  2. SURMONTIL [Interacting]
     Route: 048
  3. LORAZEPAM [Concomitant]
     Route: 048
  4. ZOMIG [Interacting]
     Indication: MIGRAINE
     Dosage: 1 TAB 1 PER 1 TOTAL
     Route: 048
     Dates: start: 20120425

REACTIONS (4)
  - PRESYNCOPE [None]
  - NAUSEA [None]
  - TREMOR [None]
  - VERTIGO [None]
